FAERS Safety Report 4658648-5 (Version None)
Quarter: 2005Q2

REPORT INFORMATION
  Report Type: 
  Country: None (occurrence: None)
  Receive Date: 20050510
  Receipt Date: 20050406
  Transmission Date: 20051028
  Serious: Yes (Death)
  Sender: FDA-Public Use
  Company Number: 2005S1001884

PATIENT
  Age: 33 Year
  Sex: Male

DRUGS (3)
  1. CLOZAPINE [Suspect]
     Indication: SCHIZOAFFECTIVE DISORDER
     Dosage: 300 MG; HS; PO
     Route: 048
     Dates: start: 20020901, end: 20050316
  2. ABILIFY [Suspect]
     Indication: SCHIZOAFFECTIVE DISORDER
     Dosage: 10 MG;QD;UNKNOWN
     Route: 065
  3. ZOLOFT [Suspect]
     Indication: SCHIZOAFFECTIVE DISORDER
     Dosage: 100 MG;QD;UNKNOWN
     Route: 065

REACTIONS (2)
  - COMPLETED SUICIDE [None]
  - TREATMENT NONCOMPLIANCE [None]
